FAERS Safety Report 24185215 (Version 1)
Quarter: 2024Q3

REPORT INFORMATION
  Report Type: Spontaneous
  Country: US (occurrence: US)
  Receive Date: 20240807
  Receipt Date: 20240807
  Transmission Date: 20241017
  Serious: No
  Sender: GLENMARK
  Company Number: US-GLENMARK PHARMACEUTICALS-2024GMK090944

PATIENT

DRUGS (4)
  1. RYALTRIS [Suspect]
     Active Substance: MOMETASONE FUROATE MONOHYDRATE\OLOPATADINE HYDROCHLORIDE
     Indication: Rhinorrhoea
     Dosage: 2 DOSAGE FORM, AM, 2 SPRAYS ONCE IN THE MORNING IN EACH NOSTRIL
     Route: 045
  2. MONTELUKAST [Concomitant]
     Active Substance: MONTELUKAST SODIUM
     Indication: Asthma
     Dosage: UNK, QD (ONCE DAILY AT NIGHT)
     Route: 048
  3. GUAIFENESIN [Concomitant]
     Active Substance: GUAIFENESIN
     Indication: Seasonal allergy
     Dosage: UNK, EVERY 12 HOURS
     Route: 048
  4. GUAIFENESIN [Concomitant]
     Active Substance: GUAIFENESIN
     Indication: Dust allergy

REACTIONS (2)
  - Drug effective for unapproved indication [Unknown]
  - Inability to afford medication [Unknown]
